FAERS Safety Report 21073612 (Version 3)
Quarter: 2023Q1

REPORT INFORMATION
  Report Type: Report from Study
  Country: US (occurrence: None)
  Receive Date: 20220713
  Receipt Date: 20230317
  Transmission Date: 20230417
  Serious: Yes (Death, Other)
  Sender: FDA-Public Use
  Company Number: US-ROCHE-3134421

PATIENT
  Age: 65 Year
  Sex: Male
  Weight: 73.8 kg

DRUGS (3)
  1. ATEZOLIZUMAB [Suspect]
     Active Substance: ATEZOLIZUMAB
     Indication: Lung adenocarcinoma
     Dosage: SUBSQUENT DOSE ADMINISTERED ON 06/AUG/2022
     Route: 041
     Dates: start: 20220607, end: 20220806
  2. COBIMETINIB [Suspect]
     Active Substance: COBIMETINIB
     Indication: Lung adenocarcinoma
     Dosage: ON DAYS 1-21. CYCLES REPEAT EVERY 28 DAYS?SUBSEQUENT DOSE ADMINISTERED ON 20/JUN/2022
     Route: 048
     Dates: end: 20220725
  3. PEMBROLIZUMAB [Concomitant]
     Active Substance: PEMBROLIZUMAB

REACTIONS (3)
  - Syncope [Unknown]
  - Disease progression [Fatal]
  - Hyperthyroidism [Unknown]

NARRATIVE: CASE EVENT DATE: 20220607
